FAERS Safety Report 9178452 (Version 2)
Quarter: 2014Q1

REPORT INFORMATION
  Report Type: Spontaneous
  Country: US (occurrence: US)
  Receive Date: 20121029
  Receipt Date: 20140228
  Transmission Date: 20141002
  Serious: No
  Sender: FDA-Public Use
  Company Number: US-AMGEN-USASP2012053111

PATIENT
  Age: 67 Year
  Sex: Female
  Weight: 55.78 kg

DRUGS (17)
  1. ENBREL [Suspect]
     Indication: PRODUCT USED FOR UNKNOWN INDICATION
     Dosage: 50 MG, QWK
     Route: 058
  2. METHOTREXATE                       /00113802/ [Concomitant]
     Dosage: 250 MG/10ML
  3. MIRAPEX [Concomitant]
     Dosage: 2.25 MG, UNK
  4. GABAPENTIN [Concomitant]
     Dosage: 250/5 ML
  5. AMLODIPINE                         /00972402/ [Concomitant]
     Dosage: 10 MG, UNK
  6. TRAZODONE                          /00447702/ [Concomitant]
     Dosage: 300 MG, UNK
  7. CYMBALTA [Concomitant]
     Dosage: 60 MG, UNK
  8. FOLIC ACID [Concomitant]
     Dosage: 5 MG/ML
  9. CALCITRATE [Concomitant]
     Dosage: UNK
  10. CENTRUM                            /02217401/ [Concomitant]
     Dosage: UNK
  11. FLONASE [Concomitant]
     Dosage: 0.05 %, UNK
  12. PRILOSEC                           /00661201/ [Concomitant]
     Dosage: 20 MG, UNK
  13. RESTASIS [Concomitant]
     Dosage: 0.05 %, UNK
  14. ILEVRO [Concomitant]
     Dosage: 0.3 %, UNK
  15. DUREZOL [Concomitant]
     Dosage: 0.05 %, UNK
  16. TYLENOL                            /00020001/ [Concomitant]
     Dosage: 500 MG, UNK
  17. DICLOFENAC [Concomitant]
     Dosage: 50 MG, UNK

REACTIONS (9)
  - Cataract [Unknown]
  - Fall [Unknown]
  - Joint injury [Unknown]
  - Limb injury [Unknown]
  - Pain in extremity [Unknown]
  - Arthralgia [Unknown]
  - Injection site bruising [Unknown]
  - Injection site pain [Unknown]
  - Injection site erythema [Unknown]
